FAERS Safety Report 6105009-8 (Version None)
Quarter: 2009Q1

REPORT INFORMATION
  Report Type: 
  Country: None (occurrence: None)
  Receive Date: 20090306
  Receipt Date: 20090226
  Transmission Date: 20090719
  Serious: Yes (Death, Other)
  Sender: FDA-Public Use
  Company Number: IE-PURDUE-GBR_2009_0004790

PATIENT
  Age: 78 Year
  Sex: Female

DRUGS (14)
  1. OXYNORM [Suspect]
     Indication: PAIN
     Dosage: 5 MG, UNK
     Route: 058
     Dates: start: 20080112
  2. OXYNORM [Suspect]
     Dosage: 15 MG S/C 24 HOURS
     Route: 058
     Dates: start: 20080111
  3. OXYNORM [Suspect]
     Dosage: 5 MG, SINGLE
     Route: 048
     Dates: start: 20080110, end: 20080110
  4. OXYNORM [Suspect]
     Dosage: 10 MG, AT 2MLS PER 24 HOURS
     Route: 058
     Dates: start: 20080110
  5. OXYCONTIN [Concomitant]
     Indication: PAIN
     Dosage: 10 MG, BID
     Route: 058
     Dates: start: 20080109
  6. MOTILIUM                           /00498201/ [Concomitant]
     Dosage: 10 MG, TID PRN
     Route: 065
  7. DEXAMETHASONE [Concomitant]
     Dosage: 2 MG, AM
     Route: 048
  8. VISCOLEX [Concomitant]
     Dosage: 15 ML, TID
     Route: 048
  9. ZOLPIDEM TARTRATE [Concomitant]
     Dosage: 10 MG, NOCTE
     Route: 048
  10. XANAX [Concomitant]
     Dosage: .125 MG, DAILY
     Route: 048
  11. ENOXAPARIN SODIUM [Concomitant]
     Indication: DEEP VEIN THROMBOSIS
     Dosage: 1.5 MG/KG, DAILY
     Route: 058
  12. DISTACLOR                          /00480601/ [Concomitant]
     Dosage: 250 MG, Q8H
     Route: 048
  13. SYMBICORT [Concomitant]
     Dosage: UNK, BID
     Route: 055
  14. MYCOSTATIN                         /00036501/ [Concomitant]
     Dosage: 1 ML, UNK
     Route: 048

REACTIONS (2)
  - DISEASE PROGRESSION [None]
  - INAPPROPRIATE SCHEDULE OF DRUG ADMINISTRATION [None]
